FAERS Safety Report 19866300 (Version 1)
Quarter: 2021Q3

REPORT INFORMATION
  Report Type: Spontaneous
  Country: DE (occurrence: DE)
  Receive Date: 20210922
  Receipt Date: 20210922
  Transmission Date: 20211014
  Serious: Yes (Hospitalization)
  Sender: FDA-Public Use
  Company Number: DE-DEXPHARM-20211546

PATIENT
  Age: 51 Year
  Sex: Female
  Weight: 75 kg

DRUGS (4)
  1. CANDESARTAN. [Suspect]
     Active Substance: CANDESARTAN
     Dosage: 8 MG, ONCE IN THE MORNING, TABLETS
     Route: 048
  2. MIRTAZAPIN [Concomitant]
     Active Substance: MIRTAZAPINE
     Dosage: 15 MG, ONCE DAILY, TABLETS
     Route: 048
  3. VENLAFAXIN [Interacting]
     Active Substance: VENLAFAXINE HYDROCHLORIDE
     Dosage: 225 MG, ONCE DAILY  IN THE MORNING, SUSTAINED?RELEASE CAPSULES
     Route: 048
  4. BISOPROLOL [Interacting]
     Active Substance: BISOPROLOL
     Dosage: BISOPROLOL 5 MG, ONCE DAILY IN THE MORNING, TABLETS
     Route: 048

REACTIONS (2)
  - Drug interaction [Recovering/Resolving]
  - Syncope [Recovering/Resolving]

NARRATIVE: CASE EVENT DATE: 20210128
